FAERS Safety Report 8493924 (Version 6)
Quarter: 2013Q3

REPORT INFORMATION
  Report Type: Spontaneous
  Country: US (occurrence: US)
  Receive Date: 20120404
  Receipt Date: 20130820
  Transmission Date: 20140515
  Serious: Yes (Hospitalization)
  Sender: FDA-Public Use
  Company Number: US-ACTELION-A-NJ2012-63216

PATIENT
  Age: 66 Year
  Sex: Female
  Weight: 50.34 kg

DRUGS (21)
  1. VELETRI [Suspect]
     Indication: PULMONARY ARTERIAL HYPERTENSION
     Dosage: 75.5 NG/KG, PER MIN
     Route: 041
     Dates: start: 20101005
  2. TRACLEER [Suspect]
     Indication: PULMONARY ARTERIAL HYPERTENSION
     Dosage: 125 MG, BID
     Route: 048
  3. TRACLEER [Suspect]
     Dosage: 62.5 MG, BID
     Route: 048
  4. SILDENAFIL [Concomitant]
  5. CARDIAZEM [Concomitant]
  6. LEVOTHYROXINE [Concomitant]
  7. LYRICA [Concomitant]
  8. SPIRONOLACTONE [Concomitant]
  9. MONTELUKAST [Concomitant]
  10. AMBIEN [Concomitant]
  11. METOCLOPRAMIDE [Concomitant]
  12. AMLODIPINE [Concomitant]
  13. LORAZEPAM [Concomitant]
  14. PANTOPRAZOLE [Concomitant]
  15. LASIX [Concomitant]
  16. LEVSIN SL [Concomitant]
  17. K-DUR [Concomitant]
  18. XIFAXAN [Concomitant]
  19. REGLAN [Concomitant]
  20. MIRAPEX [Concomitant]
  21. OXYGEN [Concomitant]

REACTIONS (21)
  - Gastrointestinal haemorrhage [Recovered/Resolved]
  - Transfusion [Recovered/Resolved]
  - Anaemia [Recovered/Resolved]
  - Right ventricular failure [Recovered/Resolved]
  - Concomitant disease aggravated [Recovered/Resolved]
  - Oedema [Recovered/Resolved]
  - Hypervolaemia [Recovered/Resolved]
  - Fluid overload [Recovered/Resolved]
  - Weight increased [Recovered/Resolved]
  - Dyspnoea [Recovered/Resolved]
  - Pericardial effusion [Recovered/Resolved]
  - Palpitations [Recovered/Resolved]
  - Gastrointestinal arteriovenous malformation [Unknown]
  - Gastric polyps [Unknown]
  - Thrombophlebitis superficial [Unknown]
  - Brain natriuretic peptide increased [Recovered/Resolved]
  - Abdominal distension [Recovered/Resolved]
  - Escherichia infection [Unknown]
  - Dizziness [Unknown]
  - Vomiting [Unknown]
  - Syncope [Unknown]
